FAERS Safety Report 6329642-3 (Version None)
Quarter: 2009Q3

REPORT INFORMATION
  Report Type: 
  Country: None (occurrence: None)
  Receive Date: 20090824
  Receipt Date: 20090508
  Transmission Date: 20100115
  Serious: Yes (Other)
  Sender: FDA-Public Use
  Company Number: DSA_33626_2009

PATIENT
  Age: 37 Year
  Sex: Female

DRUGS (2)
  1. APLENZIN [Suspect]
     Indication: CONVULSION
     Dosage: (348 MG)
  2. XANAX [Concomitant]

REACTIONS (1)
  - CONVULSION [None]
